FAERS Safety Report 9538845 (Version 3)
Quarter: 2014Q3

REPORT INFORMATION
  Report Type: Spontaneous
  Country: US (occurrence: US)
  Receive Date: 20130920
  Receipt Date: 20140709
  Transmission Date: 20150326
  Serious: Yes (Hospitalization, Other)
  Sender: FDA-Public Use
  Company Number: US-BAYER-2013-113848

PATIENT
  Age: 45 Year
  Sex: Female
  Weight: 90.7 kg

DRUGS (9)
  1. ZITHROMAX [Concomitant]
     Active Substance: AZITHROMYCIN DIHYDRATE
     Dosage: 250 MG, UNK
     Route: 048
  2. NIFEREX [Concomitant]
     Active Substance: IRON\POLYSACCHARIDES
  3. MIRENA [Suspect]
     Active Substance: LEVONORGESTREL
     Indication: CONTRACEPTION
     Dosage: 20 MCG/24HR, CONT
     Route: 015
     Dates: start: 20110518, end: 20110908
  4. ATROVENT [Concomitant]
     Active Substance: IPRATROPIUM BROMIDE
     Dosage: 0.02 %, INHALER SOLUTION
  5. FLONASE [Concomitant]
     Active Substance: FLUTICASONE PROPIONATE
  6. SUDAFED [Concomitant]
     Active Substance: PSEUDOEPHEDRINE HYDROCHLORIDE
     Dosage: 30 MG, UNK
     Route: 048
  7. PROAIR HFA [Concomitant]
     Active Substance: ALBUTEROL SULFATE
  8. LEVOTHYROXINE [Concomitant]
     Active Substance: LEVOTHYROXINE
     Dosage: 1 TABLET DAILY 100 MCG
     Route: 048
  9. SOLU-MEDROL [Concomitant]
     Active Substance: METHYLPREDNISOLONE SODIUM SUCCINATE
     Dosage: 125 MG/2 ML; INJECTION

REACTIONS (14)
  - Vaginal haemorrhage [None]
  - Emotional distress [None]
  - Fear [None]
  - Medical device discomfort [None]
  - Injury [None]
  - Uterine perforation [None]
  - Device dislocation [None]
  - Pelvic pain [None]
  - Depression [None]
  - Device expulsion [None]
  - Anxiety [None]
  - Abdominal pain lower [None]
  - Internal injury [None]
  - Depressed mood [None]

NARRATIVE: CASE EVENT DATE: 2011
